FAERS Safety Report 4785545-7 (Version None)
Quarter: 2005Q4

REPORT INFORMATION
  Report Type: 
  Country: None (occurrence: None)
  Receive Date: 20051003
  Receipt Date: 20050815
  Transmission Date: 20060501
  Serious: Yes (Hospitalization)
  Sender: FDA-Public Use
  Company Number: PHEH2005US08978

PATIENT
  Age: 39 Year
  Sex: Female
  Weight: 92 kg

DRUGS (8)
  1. ZELNORM [Suspect]
     Dosage: 6 MG, QD
     Route: 048
     Dates: start: 20040801, end: 20050501
  2. NEXIUM [Concomitant]
     Dosage: 40 MG, QD
  3. CELEXA [Concomitant]
     Dosage: 40 MG, QD
  4. COMPAZINE [Concomitant]
     Dosage: UNK, PRN
  5. VANIQA [Concomitant]
     Dosage: UNK, QD
  6. LAC-HYDRIN [Concomitant]
  7. TOPAMAX [Concomitant]
  8. EXCEDRIN (MIGRAINE) [Concomitant]

REACTIONS (8)
  - ABDOMINAL PAIN [None]
  - BIOPSY COLON ABNORMAL [None]
  - COLITIS ISCHAEMIC [None]
  - COMPUTERISED TOMOGRAM ABNORMAL [None]
  - DIARRHOEA [None]
  - LOWER GASTROINTESTINAL HAEMORRHAGE [None]
  - NAUSEA [None]
  - VOMITING [None]
